FAERS Safety Report 18708614 (Version 1)
Quarter: 2021Q1

REPORT INFORMATION
  Report Type: Spontaneous
  Country: FR (occurrence: FR)
  Receive Date: 20210106
  Receipt Date: 20210106
  Transmission Date: 20210419
  Serious: Yes (Hospitalization)
  Sender: FDA-Public Use
  Company Number: FR-TEVA-2020-FR-1864884

PATIENT
  Age: 31 Year
  Sex: Female
  Weight: 80 kg

DRUGS (6)
  1. PHLOROGLUCINOL ANHYDRE [Suspect]
     Active Substance: PHLOROGLUCINOL
     Indication: ABDOMINAL PAIN
     Route: 048
     Dates: start: 20201128, end: 20201206
  2. YERVOY [Suspect]
     Active Substance: IPILIMUMAB
     Indication: PITUITARY TUMOUR BENIGN
     Dosage: 77.5 MG
     Route: 042
     Dates: start: 20201022
  3. OPDIVO [Suspect]
     Active Substance: NIVOLUMAB
     Indication: PITUITARY TUMOUR BENIGN
     Dosage: 230 MG
     Route: 042
     Dates: start: 20201022
  4. ULTRALEVURE 200 MG, GELULE [Suspect]
     Active Substance: SACCHAROMYCES CEREVISIAE
     Indication: PROPHYLAXIS
     Route: 048
     Dates: start: 20201128, end: 20201206
  5. ACIDE CLAVULANIQUE [Suspect]
     Active Substance: CLAVULANIC ACID
     Indication: OTITIS MEDIA ACUTE
     Route: 048
     Dates: start: 20201128, end: 20201206
  6. AMOXICILLINE TRIHYDRATEE [Suspect]
     Active Substance: AMOXICILLIN
     Indication: OTITIS MEDIA ACUTE
     Route: 048
     Dates: start: 20201128, end: 20201206

REACTIONS (1)
  - Rash morbilliform [Recovered/Resolved]

NARRATIVE: CASE EVENT DATE: 20201206
